FAERS Safety Report 19717773 (Version 1)
Quarter: 2021Q3

REPORT INFORMATION
  Report Type: Report from Study
  Country: IT (occurrence: IT)
  Receive Date: 20210818
  Receipt Date: 20210818
  Transmission Date: 20211014
  Serious: Yes (Hospitalization)
  Sender: FDA-Public Use
  Company Number: IT-MYLANLABS-2021M1051111

PATIENT
  Age: 89 Year
  Sex: Female

DRUGS (6)
  1. DOXAZOSIN [Concomitant]
     Active Substance: DOXAZOSIN MESYLATE
     Dosage: 4 MILLIGRAM
  2. FUROSEMIDE. [Suspect]
     Active Substance: FUROSEMIDE
     Indication: PRODUCT USED FOR UNKNOWN INDICATION
     Dosage: 25 MILLIGRAM, QD
     Route: 048
     Dates: start: 20200101, end: 20210114
  3. PANTOPRAZOLE [Concomitant]
     Active Substance: PANTOPRAZOLE
     Dosage: 20 MILLIGRAM
  4. AMLODIPINE [Concomitant]
     Active Substance: AMLODIPINE BESYLATE
     Dosage: 10 MILLIGRAM
  5. FOLIC ACID. [Concomitant]
     Active Substance: FOLIC ACID
     Dosage: 5 MILLIGRAM
  6. BISOPROLOL HEMIFUMARATE [Concomitant]
     Active Substance: BISOPROLOL FUMARATE
     Dosage: 2.5 MILLIGRAM

REACTIONS (2)
  - Blood sodium decreased [Not Recovered/Not Resolved]
  - Confusional state [Not Recovered/Not Resolved]

NARRATIVE: CASE EVENT DATE: 20210114
